FAERS Safety Report 6784439-5 (Version None)
Quarter: 2010Q2

REPORT INFORMATION
  Report Type: 
  Country: None (occurrence: None)
  Receive Date: 20100617
  Receipt Date: 20100607
  Transmission Date: 20101027
  Serious: Yes (Hospitalization)
  Sender: FDA-Public Use
  Company Number: 612608

PATIENT
  Age: 59 Year
  Sex: Female

DRUGS (17)
  1. FENTANYL CITRATE [Suspect]
     Indication: SEDATIVE THERAPY
     Dosage: 250 ?G MICROGRAM(S), INTRAVENOUS
     Route: 042
  2. ESCITALOPRAM [Suspect]
     Indication: DRUG USE FOR UNKNOWN INDICATION
  3. INSULIN [Concomitant]
  4. TRAZODONE HYDROCHLORIDE [Concomitant]
  5. (GABAPENTIN) [Concomitant]
  6. LANSOPRAZOLE [Concomitant]
  7. LORAZEPAM [Concomitant]
  8. OXYCODONE HCL [Concomitant]
  9. CETIRIZINE HCL [Concomitant]
  10. ETOMIDATE [Concomitant]
  11. VECURONIUM BROMIDE [Concomitant]
  12. MORPHINE SULFATE [Concomitant]
  13. CEFAZOLIN [Concomitant]
  14. ALBUTEROL SULFATE AND IPRATROPIUM BROMIDE [Concomitant]
  15. ENOXAPARIN SODIUM [Concomitant]
  16. FAMOTIDINE [Concomitant]
  17. MIDAZOLAM HCL [Concomitant]

REACTIONS (5)
  - BLOOD PRESSURE DIASTOLIC DECREASED [None]
  - DRUG INTERACTION [None]
  - HYPOXIA [None]
  - RESPIRATORY ACIDOSIS [None]
  - SEROTONIN SYNDROME [None]
